FAERS Safety Report 7919438-0 (Version None)
Quarter: 2011Q4

REPORT INFORMATION
  Report Type: 
  Country: None (occurrence: None)
  Receive Date: 20111115
  Receipt Date: 20111101
  Transmission Date: 20120403
  Serious: Yes (Hospitalization, Other)
  Sender: FDA-Public Use
  Company Number: ACO_27457_2011

PATIENT
  Age: 52 Year
  Sex: Female
  Weight: 108.8633 kg

DRUGS (11)
  1. MULTI-VITAMIN [Concomitant]
  2. ESTRACE [Concomitant]
  3. PRINIVIL (LISINOPRIL DIHYDRATE) [Concomitant]
  4. CALCIUM +D [Concomitant]
  5. BETASERON GLUCOSE, INTERFERON BETA) [Concomitant]
  6. DITROPAN XL [Concomitant]
  7. ZESTRIL [Concomitant]
  8. MEVACOR [Concomitant]
  9. PAXIL [Concomitant]
  10. MYSOLINE [Concomitant]
  11. AMPYRA [Suspect]
     Indication: GAIT DISTURBANCE
     Dosage: 10 MG, UNK, ORAL
     Route: 048
     Dates: start: 20100811, end: 20110629

REACTIONS (14)
  - AMNESIA [None]
  - TREMOR [None]
  - ELECTROCARDIOGRAM ST SEGMENT DEPRESSION [None]
  - CONVULSION [None]
  - SINUS TACHYCARDIA [None]
  - SYNCOPE [None]
  - BLOOD PRESSURE INCREASED [None]
  - CONTUSION [None]
  - SPECIFIC GRAVITY URINE INCREASED [None]
  - FALL [None]
  - JOINT DISLOCATION [None]
  - BLOOD GLUCOSE INCREASED [None]
  - LOSS OF CONSCIOUSNESS [None]
  - URINARY TRACT INFECTION [None]
